FAERS Safety Report 7006560-9 (Version None)
Quarter: 2010Q3

REPORT INFORMATION
  Report Type: 
  Country: None (occurrence: None)
  Receive Date: 20100921
  Receipt Date: 20090209
  Transmission Date: 20110219
  Serious: No
  Sender: FDA-Public Use
  Company Number: US-WYE-H08139809

PATIENT
  Sex: Male

DRUGS (1)
  1. NEUMEGA [Suspect]
     Indication: LEUKAEMIA
     Dosage: UNKNOWN
     Dates: end: 20090206

REACTIONS (3)
  - HYPOTENSION [None]
  - SOMNOLENCE [None]
  - SWELLING [None]
